FAERS Safety Report 15726139 (Version 1)
Quarter: 2018Q4

REPORT INFORMATION
  Report Type: Spontaneous
  Country: HR (occurrence: HR)
  Receive Date: 20181216
  Receipt Date: 20181216
  Transmission Date: 20190205
  Serious: Yes (Hospitalization)
  Sender: FDA-Public Use
  Company Number: HR-AMGEN-HRVSP2018177727

PATIENT
  Age: 50 Year
  Sex: Male
  Weight: 80 kg

DRUGS (4)
  1. FOLACIN [Concomitant]
     Indication: SPONDYLITIS
     Dosage: 5 MG, 1X/DAY
     Route: 048
     Dates: start: 20150225
  2. DECORTIN [Concomitant]
     Active Substance: PREDNISONE
     Indication: SPONDYLITIS
     Dosage: 2.5 MG, 1X/DAY
     Route: 048
     Dates: start: 20150225
  3. ENBREL [Suspect]
     Active Substance: ETANERCEPT
     Indication: SPONDYLITIS
     Dosage: 50 MG, QWK
     Route: 058
     Dates: start: 20150225, end: 20160118
  4. METOTREXAT [Concomitant]
     Active Substance: METHOTREXATE SODIUM
     Indication: SPONDYLITIS
     Dosage: 15 MG, 1X/DAY
     Route: 048
     Dates: start: 20150225, end: 20160118

REACTIONS (6)
  - Left ventricular dysfunction [Recovered/Resolved]
  - Product use in unapproved indication [Unknown]
  - Ventricular tachycardia [Recovered/Resolved]
  - Ischaemic cardiomyopathy [Recovered/Resolved]
  - Peripheral artery thrombosis [Recovered/Resolved]
  - Cardiac failure [Recovered/Resolved]

NARRATIVE: CASE EVENT DATE: 20150225
